FAERS Safety Report 11082645 (Version 1)
Quarter: 2015Q2

REPORT INFORMATION
  Report Type: Spontaneous
  Country: US (occurrence: US)
  Receive Date: 20150501
  Receipt Date: 20150501
  Transmission Date: 20150821
  Serious: No
  Sender: FDA-Public Use
  Company Number: US-ABBVIE-14P-163-1235007-00

PATIENT
  Age: 65 Year
  Sex: Male
  Weight: 81.72 kg

DRUGS (1)
  1. ANDROGEL [Suspect]
     Active Substance: TESTOSTERONE
     Indication: BLOOD TESTOSTERONE DECREASED
     Dosage: 2 PUMPS
     Route: 061
     Dates: start: 201404, end: 201404

REACTIONS (5)
  - Drug administered at inappropriate site [Not Recovered/Not Resolved]
  - Genital erythema [Not Recovered/Not Resolved]
  - Genital pain [Not Recovered/Not Resolved]
  - Gait disturbance [Not Recovered/Not Resolved]
  - Genital discomfort [Not Recovered/Not Resolved]

NARRATIVE: CASE EVENT DATE: 201404
